FAERS Safety Report 11206050 (Version 1)
Quarter: 2015Q2

REPORT INFORMATION
  Report Type: Spontaneous
  Country: US (occurrence: None)
  Receive Date: 20150619
  Receipt Date: 20150619
  Transmission Date: 20150821
  Serious: Yes (Life-Threatening, Hospitalization, Disabling)
  Sender: FDA-Public Use
  Company Number: None

PATIENT
  Age: 68 Year
  Sex: Male
  Weight: 79 kg

DRUGS (13)
  1. THYROID [Concomitant]
     Active Substance: LEVOTHYROXINE\LIOTHYRONINE
  2. RENVELA [Concomitant]
     Active Substance: SEVELAMER CARBONATE
  3. DARBEPEOTIN ALFA [Concomitant]
  4. VITAMIN D3 [Concomitant]
     Active Substance: CHOLECALCIFEROL
  5. CALCITRIOL. [Concomitant]
     Active Substance: CALCITRIOL
  6. COLACE [Concomitant]
     Active Substance: DOCUSATE SODIUM
  7. EFFIENT [Concomitant]
     Active Substance: PRASUGREL HYDROCHLORIDE
  8. RENA VITE [Concomitant]
  9. SIMVASTATIN. [Concomitant]
     Active Substance: SIMVASTATIN
  10. COREG [Concomitant]
     Active Substance: CARVEDILOL
  11. ACYCLOVIR 800 MG CARLSBAD TECH [Suspect]
     Active Substance: ACYCLOVIR
     Indication: HERPES ZOSTER
     Dosage: 1 PILL
     Route: 048
     Dates: start: 20150430, end: 20150506
  12. ASPIRIN. [Concomitant]
     Active Substance: ASPIRIN
  13. PRILOSEC [Concomitant]
     Active Substance: OMEPRAZOLE MAGNESIUM

REACTIONS (5)
  - Haemodialysis [None]
  - Mental status changes [None]
  - Nausea [None]
  - Vomiting [None]
  - Urine output decreased [None]

NARRATIVE: CASE EVENT DATE: 20150506
